FAERS Safety Report 4843390-8 (Version None)
Quarter: 2005Q4

REPORT INFORMATION
  Report Type: 
  Country: None (occurrence: None)
  Receive Date: 20051201
  Receipt Date: 20051123
  Transmission Date: 20060501
  Serious: Yes (Hospitalization)
  Sender: FDA-Public Use
  Company Number: US-MERCK-0511USA04209

PATIENT
  Age: 77 Year
  Sex: Female
  Weight: 105 kg

DRUGS (7)
  1. VIOXX [Suspect]
     Indication: PAIN
     Route: 048
  2. VIOXX [Suspect]
     Indication: ARTHRALGIA
     Route: 048
  3. FUROSEMIDE [Concomitant]
     Route: 065
  4. INSULIN [Concomitant]
     Route: 065
  5. LANOXIN [Concomitant]
     Route: 065
  6. MAGNESIUM OXIDE [Concomitant]
     Route: 065
  7. TOPROL-XL [Concomitant]
     Route: 065

REACTIONS (1)
  - CEREBROVASCULAR ACCIDENT [None]
